FAERS Safety Report 7034565-0 (Version None)
Quarter: 2010Q4

REPORT INFORMATION
  Report Type: 
  Country: None (occurrence: None)
  Receive Date: 20101008
  Receipt Date: 20101005
  Transmission Date: 20110411
  Serious: Yes (Hospitalization)
  Sender: FDA-Public Use
  Company Number: FR-BRISTOL-MYERS SQUIBB COMPANY-15322605

PATIENT
  Age: 62 Year
  Sex: Female

DRUGS (10)
  1. COUMADIN [Suspect]
     Indication: CARDIAC VALVE PROSTHESIS USER
     Route: 048
  2. LOVENOX [Suspect]
     Indication: LUNG DISORDER
     Route: 058
     Dates: start: 20091224, end: 20100107
  3. ROCEPHIN [Suspect]
     Indication: LUNG DISORDER
     Route: 042
     Dates: start: 20091223, end: 20100101
  4. OFLOCET [Suspect]
     Indication: LUNG DISORDER
     Route: 048
     Dates: start: 20091223, end: 20091228
  5. TAREG [Concomitant]
  6. FUROSEMIDE [Concomitant]
  7. DIFFU-K [Concomitant]
  8. LEVOTHYROXINE SODIUM [Concomitant]
     Dosage: LEVOTHYROX 25 A?G;1 DF -0.5 UNITS NOS
  9. NEXIUM [Concomitant]
  10. SERETIDE [Concomitant]
     Dosage: 1 DF - 500 UNITS NOS
     Route: 055

REACTIONS (4)
  - HAEMATOMA [None]
  - INTERNATIONAL NORMALISED RATIO INCREASED [None]
  - PLEURAL EFFUSION [None]
  - PNEUMONIA [None]
